FAERS Safety Report 8380043-6 (Version None)
Quarter: 2012Q2

REPORT INFORMATION
  Report Type: 
  Country: None (occurrence: None)
  Receive Date: 20120523
  Receipt Date: 20120510
  Transmission Date: 20120825
  Serious: Yes (Other)
  Sender: FDA-Public Use
  Company Number: US-GLAXOSMITHKLINE-A0890707A

PATIENT
  Age: 81 Year
  Sex: Female
  Weight: 79.1 kg

DRUGS (6)
  1. AVANDIA [Suspect]
     Indication: DIABETES MELLITUS
     Dosage: 2MG TWICE PER DAY
     Route: 048
     Dates: start: 20020101, end: 20070523
  2. AVANDAMET [Suspect]
     Indication: DIABETES MELLITUS
     Route: 048
     Dates: start: 20030101, end: 20040301
  3. LESCOL [Concomitant]
  4. AVAPRO [Concomitant]
  5. PROTONIX [Concomitant]
  6. ZETIA [Concomitant]

REACTIONS (4)
  - DYSPNOEA [None]
  - MUSCULOSKELETAL PAIN [None]
  - PAIN IN EXTREMITY [None]
  - SILENT MYOCARDIAL INFARCTION [None]
